FAERS Safety Report 23691301 (Version 2)
Quarter: 2024Q2

REPORT INFORMATION
  Report Type: Report from Study
  Country: CA (occurrence: CA)
  Receive Date: 20240401
  Receipt Date: 20240423
  Transmission Date: 20240715
  Serious: Yes (Hospitalization, Other)
  Sender: FDA-Public Use
  Company Number: CA-ABBVIE-5698909

PATIENT
  Age: 54 Year
  Sex: Male
  Weight: 63 kg

DRUGS (1)
  1. GLECAPREVIR\PIBRENTASVIR [Suspect]
     Active Substance: GLECAPREVIR\PIBRENTASVIR
     Indication: Chronic hepatitis C
     Dosage: THREE TIMES PER DAY, 100/40 MG FOR 8 WEEKS
     Route: 048
     Dates: start: 20240119, end: 20240315

REACTIONS (2)
  - Spinal operation [Unknown]
  - Fatigue [Unknown]

NARRATIVE: CASE EVENT DATE: 20240101
